FAERS Safety Report 5676211-4 (Version None)
Quarter: 2008Q1

REPORT INFORMATION
  Report Type: 
  Country: None (occurrence: None)
  Receive Date: 20080321
  Receipt Date: 20080314
  Transmission Date: 20080703
  Serious: Yes (Other)
  Sender: FDA-Public Use
  Company Number: CA-GENENTECH-257820

PATIENT
  Age: 61 Year
  Sex: Male

DRUGS (3)
  1. AVASTIN [Suspect]
     Indication: PANCREATIC CARCINOMA
     Dosage: 10 MG/KG, Q2W
  2. ERLOTINIB [Suspect]
     Indication: PANCREATIC CARCINOMA
  3. GEMCITABINE [Concomitant]
     Indication: PANCREATIC CARCINOMA

REACTIONS (1)
  - THROMBOTIC MICROANGIOPATHY [None]
